FAERS Safety Report 7086053-3 (Version None)
Quarter: 2010Q4

REPORT INFORMATION
  Report Type: 
  Country: None (occurrence: None)
  Receive Date: 20101105
  Receipt Date: 20101102
  Transmission Date: 20110411
  Serious: Yes (Other)
  Sender: FDA-Public Use
  Company Number: A0890296A

PATIENT
  Age: 4 Year
  Sex: Female

DRUGS (5)
  1. ADVAIR DISKUS 100/50 [Suspect]
     Indication: ASTHMA
     Dosage: 2PUFF TWICE PER DAY
     Route: 055
     Dates: start: 20070101
  2. XOPENEX [Concomitant]
  3. DIMETAPP COUGH + COLD [Concomitant]
  4. TRIAMINIC COLD + ALLERGY [Concomitant]
  5. FLINTSTONE VITAMINS [Concomitant]

REACTIONS (4)
  - ASTHMA [None]
  - INCORRECT STORAGE OF DRUG [None]
  - OFF LABEL USE [None]
  - OVERDOSE [None]
